FAERS Safety Report 7773103-1 (Version None)
Quarter: 2011Q3

REPORT INFORMATION
  Report Type: 
  Country: None (occurrence: None)
  Receive Date: 20110922
  Receipt Date: 20100803
  Transmission Date: 20111222
  Serious: No
  Sender: FDA-Public Use
  Company Number: US-ASTRAZENECA-2007UW25209

PATIENT
  Age: 58 Year
  Sex: Male
  Weight: 79.4 kg

DRUGS (3)
  1. SEROQUEL [Suspect]
     Indication: ANXIETY
     Dosage: 200 MG TO 600 MG
     Route: 048
     Dates: start: 20020801
  2. ABILIFY [Concomitant]
  3. SEROQUEL [Suspect]
     Indication: DEPRESSION
     Dosage: 200 MG TO 600 MG
     Route: 048
     Dates: start: 20020801

REACTIONS (5)
  - ANKLE FRACTURE [None]
  - TYPE 2 DIABETES MELLITUS [None]
  - NERVOUS SYSTEM DISORDER [None]
  - DIABETES MELLITUS [None]
  - DIABETIC COMPLICATION [None]
